FAERS Safety Report 11842968 (Version 11)
Quarter: 2019Q3

REPORT INFORMATION
  Report Type: Report from Study
  Country: DE (occurrence: US)
  Receive Date: 20151216
  Receipt Date: 20190724
  Transmission Date: 20191004
  Serious: Yes (Hospitalization, Other)
  Sender: FDA-Public Use
  Company Number: US-ACTELION-A-US2015-121667

PATIENT
  Age: 37 Year
  Sex: Female
  Weight: 48.53 kg

DRUGS (12)
  1. ADEMPAS [Suspect]
     Active Substance: RIOCIGUAT
     Dosage: 2.5 MG, TID
     Route: 048
  2. TRACLEER [Suspect]
     Active Substance: BOSENTAN
     Dosage: UNK
     Route: 048
  3. KEPPRA [Concomitant]
     Active Substance: LEVETIRACETAM
     Dosage: 250 MCG, BID
  4. TRACLEER [Suspect]
     Active Substance: BOSENTAN
     Indication: PULMONARY ARTERIAL HYPERTENSION
     Dosage: 125 MG, BID
     Route: 048
     Dates: start: 20020226
  5. ADEMPAS [Suspect]
     Active Substance: RIOCIGUAT
     Indication: PULMONARY HYPERTENSION
     Dosage: 2.5 MG, TID
     Route: 048
     Dates: start: 20140220
  6. VIMPAT [Concomitant]
     Active Substance: LACOSAMIDE
  7. VENTAVIS [Suspect]
     Active Substance: ILOPROST
     Dosage: 5 MCG, 6-9 TIMES PER DAY
     Route: 055
  8. VENTAVIS [Suspect]
     Active Substance: ILOPROST
     Indication: PULMONARY ARTERIAL HYPERTENSION
     Dosage: 5 MCG, 2-6 X DAILY
     Route: 055
     Dates: start: 20050606
  9. COUMADIN [Concomitant]
     Active Substance: WARFARIN SODIUM
  10. SILDENAFIL. [Concomitant]
     Active Substance: SILDENAFIL
  11. ROBITUSSIN DM [Concomitant]
     Active Substance: DEXTROMETHORPHAN HYDROBROMIDE\GUAIFENESIN
  12. KEPPRA [Concomitant]
     Active Substance: LEVETIRACETAM
     Dosage: 1000 UNK

REACTIONS (25)
  - Diarrhoea [Unknown]
  - Generalised tonic-clonic seizure [Unknown]
  - Oropharyngeal pain [Unknown]
  - Gait disturbance [Unknown]
  - Fear [Unknown]
  - Dementia [Unknown]
  - Fall [Unknown]
  - Syncope [Unknown]
  - Nausea [Unknown]
  - Respiratory tract congestion [Unknown]
  - Ear infection [Recovered/Resolved]
  - Influenza [Unknown]
  - Cough [Unknown]
  - Hallucination [Unknown]
  - Dyspnoea [Unknown]
  - Dysstasia [Unknown]
  - Fatigue [Unknown]
  - Vomiting [Unknown]
  - Seizure [Unknown]
  - Productive cough [Unknown]
  - Oxygen saturation decreased [Unknown]
  - Head injury [Unknown]
  - Pneumonia [Unknown]
  - Dizziness [Unknown]
  - Nasopharyngitis [Unknown]

NARRATIVE: CASE EVENT DATE: 20160708
